FAERS Safety Report 4662764-1 (Version None)
Quarter: 2005Q2

REPORT INFORMATION
  Report Type: 
  Country: None (occurrence: None)
  Receive Date: 20050512
  Receipt Date: 20050426
  Transmission Date: 20051028
  Serious: Yes (Death, Hospitalization)
  Sender: FDA-Public Use
  Company Number: EWC050343005

PATIENT
  Age: 45 Year
  Sex: Female
  Weight: 68 kg

DRUGS (2)
  1. GEMCITABINE HYDROCHLORIDE-IV (GEMCITABINE) [Suspect]
     Indication: BREAST CANCER METASTATIC
     Dosage: 1800 MG/2 OTHER
     Route: 050
     Dates: start: 20041117, end: 20050204
  2. XELODA [Concomitant]

REACTIONS (10)
  - BRAIN HERNIATION [None]
  - CEREBRAL HAEMORRHAGE [None]
  - CEREBRAL INFARCTION [None]
  - CEREBROVASCULAR DISORDER [None]
  - COMA [None]
  - INTRACRANIAL VENOUS SINUS THROMBOSIS [None]
  - LOSS OF CONSCIOUSNESS [None]
  - NEUTROPENIA [None]
  - SENSORY DISTURBANCE [None]
  - TRANSVERSE SINUS THROMBOSIS [None]
